FAERS Safety Report 5465862-8 (Version None)
Quarter: 2007Q3

REPORT INFORMATION
  Report Type: 
  Country: None (occurrence: None)
  Receive Date: 20070924
  Receipt Date: 20070920
  Transmission Date: 20080115
  Serious: Yes (Death)
  Sender: FDA-Public Use
  Company Number: PHEH2007US12577

PATIENT
  Age: 87 Year
  Sex: Male
  Weight: 73.015 kg

DRUGS (2)
  1. TEKTURNA [Suspect]
     Indication: HYPERTENSION
     Dosage: 150 MG, QD
     Route: 048
     Dates: start: 20070913
  2. LISINOPRIL [Concomitant]
     Dosage: 40 MG, UNK

REACTIONS (1)
  - ARRHYTHMIA [None]
